FAERS Safety Report 5204691-7 (Version None)
Quarter: 2007Q1

REPORT INFORMATION
  Report Type: 
  Country: None (occurrence: None)
  Receive Date: 20070110
  Receipt Date: 20060615
  Transmission Date: 20070707
  Serious: Yes (Other)
  Sender: FDA-Public Use
  Company Number: US-BRISTOL-MYERS SQUIBB COMPANY-13414107

PATIENT
  Age: 9 Year
  Sex: Male

DRUGS (3)
  1. ABILIFY [Suspect]
     Indication: BIPOLAR DISORDER
  2. DEPAKOTE [Concomitant]
  3. CLONIDINE [Concomitant]

REACTIONS (3)
  - CONVULSION [None]
  - HEADACHE [None]
  - NEUROLEPTIC MALIGNANT SYNDROME [None]
